FAERS Safety Report 7883716-4 (Version None)
Quarter: 2011Q4

REPORT INFORMATION
  Report Type: 
  Country: None (occurrence: None)
  Receive Date: 20111102
  Receipt Date: 20111026
  Transmission Date: 20120403
  Serious: Yes (Hospitalization, Other)
  Sender: FDA-Public Use
  Company Number: CA-SANOFI-AVENTIS-2011SA040046

PATIENT
  Age: 66 Year
  Sex: Male

DRUGS (20)
  1. ASPIRIN [Concomitant]
  2. TYLENOL W/ CODEINE NO. 3 [Concomitant]
     Dosage: 1 TO 2 TABS Q4-6HR PRN
     Route: 048
  3. LASIX [Concomitant]
     Route: 048
  4. SENNA [Concomitant]
     Dosage: 1-2 TABS PO QHS PRN
     Route: 048
  5. GABAPENTIN [Concomitant]
     Route: 048
  6. RAMIPRIL [Concomitant]
     Route: 048
  7. TYLENOL-500 [Concomitant]
     Dosage: 325 TO 650 MG PO Q4-6 HRS PRN
     Route: 048
  8. HYDROMORPHONE HCL [Concomitant]
     Dosage: 1 MG PO Q4HR PRN
     Route: 048
  9. ROSUVASTATIN [Concomitant]
     Route: 048
  10. NPH INSULIN [Concomitant]
     Route: 062
  11. METOPROLOL TARTRATE [Concomitant]
     Route: 048
  12. PLAVIX [Concomitant]
  13. BISACODYL [Concomitant]
     Route: 054
  14. ADVAIR DISKUS 100/50 [Concomitant]
     Dosage: DOSE:2 PUFF(S)
     Route: 055
  15. DRONEDARONE HCL [Suspect]
     Indication: ATRIAL FIBRILLATION
     Route: 048
     Dates: start: 20110324
  16. WARFARIN SODIUM [Concomitant]
  17. ACETYLCYSTEINE [Concomitant]
  18. INSULIN [Concomitant]
  19. COLACE [Concomitant]
     Route: 048
  20. REGULAR INSULIN [Concomitant]
     Indication: BLOOD GLUCOSE FLUCTUATION
     Dosage: DOSE:8 UNIT(S)
     Route: 062

REACTIONS (2)
  - POST PROCEDURAL COMPLICATION [None]
  - MYOCARDIAL INFARCTION [None]
